FAERS Safety Report 22062348 (Version 3)
Quarter: 2023Q2

REPORT INFORMATION
  Report Type: Report from Study
  Country: AR (occurrence: AR)
  Receive Date: 20230305
  Receipt Date: 20230407
  Transmission Date: 20230722
  Serious: No
  Sender: FDA-Public Use
  Company Number: AR-JNJFOC-20230250283

PATIENT
  Age: 33 Year
  Sex: Female
  Weight: 79 kg

DRUGS (1)
  1. SIMPONI [Suspect]
     Active Substance: GOLIMUMAB
     Indication: Rheumatoid arthritis
     Dosage: STRENGTH: 50.00 MG / 0.50 ML
     Route: 058
     Dates: start: 20210212

REACTIONS (4)
  - Syringe issue [Unknown]
  - Application site haemorrhage [Unknown]
  - Accidental exposure to product [Unknown]
  - Product dose omission issue [Unknown]
